FAERS Safety Report 20525666 (Version 3)
Quarter: 2022Q2

REPORT INFORMATION
  Report Type: Report from Study
  Country: DE (occurrence: DE)
  Receive Date: 20220228
  Receipt Date: 20220606
  Transmission Date: 20220721
  Serious: Yes (Life-Threatening, Hospitalization, Other)
  Sender: FDA-Public Use
  Company Number: DE-BRISTOL-MYERS SQUIBB COMPANY-BMS-2022-026944

PATIENT
  Age: 53 Year
  Sex: Male

DRUGS (1)
  1. NIVOLUMAB [Suspect]
     Active Substance: NIVOLUMAB
     Indication: Squamous cell carcinoma of head and neck
     Dosage: 240 MILLIGRAM, Q2WK
     Route: 042
     Dates: start: 20200603, end: 20211208

REACTIONS (6)
  - Duodenitis [Recovered/Resolved]
  - Ileus paralytic [Recovered/Resolved]
  - Diarrhoea [Recovering/Resolving]
  - Hypernatraemia [Recovered/Resolved]
  - Oesophagitis [Recovered/Resolved]
  - Peritonitis [Recovered/Resolved]

NARRATIVE: CASE EVENT DATE: 20211208
